FAERS Safety Report 8856641 (Version 1)
Quarter: 2012Q4

REPORT INFORMATION
  Report Type: Spontaneous
  Country: US (occurrence: None)
  Receive Date: 20121024
  Receipt Date: 20121024
  Transmission Date: 20130627
  Serious: Yes (Other)
  Sender: FDA-Public Use
  Company Number: None

PATIENT
  Age: 38 Year
  Sex: Female
  Weight: 72.58 kg

DRUGS (1)
  1. METHYLPREDNISOLONE [Suspect]
     Indication: NERVE COMPRESSION
     Dates: start: 20120101, end: 20120201

REACTIONS (11)
  - Substance-induced psychotic disorder [None]
  - No therapeutic response [None]
  - Headache [None]
  - Musculoskeletal stiffness [None]
  - Nausea [None]
  - Dizziness [None]
  - Fatigue [None]
  - Heart rate decreased [None]
  - Pyrexia [None]
  - Hypoaesthesia [None]
  - Muscle twitching [None]
